FAERS Safety Report 13333556 (Version 1)
Quarter: 2017Q1

REPORT INFORMATION
  Report Type: Spontaneous
  Country: ES (occurrence: ES)
  Receive Date: 20170314
  Receipt Date: 20170314
  Transmission Date: 20170428
  Serious: Yes (Other)
  Sender: FDA-Public Use
  Company Number: ES-REGENERON PHARMACEUTICALS, INC.-2017-13038

PATIENT

DRUGS (4)
  1. EYLEA [Suspect]
     Active Substance: AFLIBERCEPT
     Dosage: 4 INJECTIONS ON 2ND YEAR: 12+3, 12+4,12+5 AND 12+9
     Route: 031
  2. EYLEA [Suspect]
     Active Substance: AFLIBERCEPT
     Dosage: 3 INJECTIONS ON THE 3THIRD YEAR: 24, 24+2 AND 24+6
     Route: 031
  3. EYLEA [Suspect]
     Active Substance: AFLIBERCEPT
     Indication: PRODUCT USED FOR UNKNOWN INDICATION
     Dosage: 5 INJECTIONS: 1ST,2ND,3RD,6TH,9TH MONTHS
     Route: 031
  4. DEXAMETHASONE. [Suspect]
     Active Substance: DEXAMETHASONE
     Indication: PRODUCT USED FOR UNKNOWN INDICATION
     Dosage: FIRST DOSE AFTER 12TH MONTH TREATMENT
     Route: 031

REACTIONS (7)
  - Iris neovascularisation [Unknown]
  - Visual acuity reduced [Unknown]
  - Macular oedema [Recovered/Resolved]
  - Glaucoma [Unknown]
  - Cataract [Unknown]
  - Macular oedema [Unknown]
  - Off label use [Unknown]
